FAERS Safety Report 18756422 (Version 4)
Quarter: 2021Q2

REPORT INFORMATION
  Report Type: Spontaneous
  Country: US (occurrence: US)
  Receive Date: 20210119
  Receipt Date: 20210419
  Transmission Date: 20210717
  Serious: Yes (Hospitalization, Other)
  Sender: FDA-Public Use
  Company Number: US-PFIZER INC-2021035398

PATIENT
  Age: 71 Year
  Sex: Female
  Weight: 65.76 kg

DRUGS (4)
  1. IBRANCE [Suspect]
     Active Substance: PALBOCICLIB
     Dosage: 125 MG, 1X/DAY
     Dates: start: 201402
  2. XGEVA [Concomitant]
     Active Substance: DENOSUMAB
     Dosage: UNK, CYCLIC, (ONCE A MONTH)
     Dates: start: 201902
  3. IBRANCE [Suspect]
     Active Substance: PALBOCICLIB
     Indication: BREAST CANCER FEMALE
     Dosage: 100 MG, 1X/DAY
  4. FASLODEX [Concomitant]
     Active Substance: FULVESTRANT
     Dosage: UNK, CYCLIC (ONCE A MONTH)
     Dates: start: 201902

REACTIONS (6)
  - Vulvovaginal dryness [Unknown]
  - Osteopenia [Unknown]
  - Dry skin [Unknown]
  - Femur fracture [Unknown]
  - Osteoporosis [Unknown]
  - Vulvovaginal pruritus [Unknown]

NARRATIVE: CASE EVENT DATE: 20200713
